FAERS Safety Report 6609979-0 (Version None)
Quarter: 2010Q1

REPORT INFORMATION
  Report Type: 
  Country: None (occurrence: None)
  Receive Date: 20100216
  Receipt Date: 20090203
  Transmission Date: 20100710
  Serious: Yes (Life-Threatening, Hospitalization)
  Sender: FDA-Public Use
  Company Number: MC200900034

PATIENT
  Age: 50 Year
  Sex: Male

DRUGS (3)
  1. ANGIOMAX [Suspect]
     Indication: PERCUTANEOUS CORONARY INTERVENTION
     Dosage: 0.75 MG/KG, BOLUS, INTRAVENOUS, 1.75 MG/KG, HR,  INTRAVENOUS
     Route: 040
     Dates: start: 20081101, end: 20081101
  2. ANGIOMAX [Suspect]
     Indication: PERCUTANEOUS CORONARY INTERVENTION
     Dosage: 0.75 MG/KG, BOLUS, INTRAVENOUS, 1.75 MG/KG, HR,  INTRAVENOUS
     Route: 040
     Dates: start: 20081101, end: 20081101
  3. PLAVIX [Suspect]
     Dosage: 600 MG

REACTIONS (2)
  - CHEST PAIN [None]
  - THROMBOSIS IN DEVICE [None]
